FAERS Safety Report 22152609 (Version 1)
Quarter: 2023Q1

REPORT INFORMATION
  Report Type: Spontaneous
  Country: US (occurrence: None)
  Receive Date: 20230329
  Receipt Date: 20230329
  Transmission Date: 20230417
  Serious: Yes (Other)
  Sender: FDA-Public Use
  Company Number: None

PATIENT
  Age: 68 Year
  Sex: Male
  Weight: 93.6 kg

DRUGS (2)
  1. ELIGARD [Suspect]
     Active Substance: LEUPROLIDE ACETATE
     Indication: Prostate cancer
     Dosage: OTHER STRENGTH : UNKNOWN;?
     Dates: start: 20230315
  2. NADOLOL [Concomitant]
     Active Substance: NADOLOL

REACTIONS (11)
  - Swelling face [None]
  - Peripheral swelling [None]
  - Peripheral swelling [None]
  - Muscle spasms [None]
  - Peripheral swelling [None]
  - Back pain [None]
  - Insomnia [None]
  - Arthralgia [None]
  - Arthralgia [None]
  - Musculoskeletal stiffness [None]
  - Pain in extremity [None]

NARRATIVE: CASE EVENT DATE: 20230315
